FAERS Safety Report 15692152 (Version 3)
Quarter: 2018Q4

REPORT INFORMATION
  Report Type: Spontaneous
  Country: IT (occurrence: IT)
  Receive Date: 20181205
  Receipt Date: 20181212
  Transmission Date: 20190205
  Serious: Yes (Hospitalization)
  Sender: FDA-Public Use
  Company Number: IT-MYLANLABS-2018M1090871

PATIENT
  Age: 16 Year
  Sex: Female

DRUGS (1)
  1. CLOZAPINE. [Suspect]
     Active Substance: CLOZAPINE
     Indication: PRODUCT USED FOR UNKNOWN INDICATION
     Dosage: 100 MILLIGRAM
     Route: 048
     Dates: start: 20181122, end: 20181122

REACTIONS (3)
  - Malaise [Recovering/Resolving]
  - Product use issue [Recovered/Resolved]
  - Medication error [Recovering/Resolving]

NARRATIVE: CASE EVENT DATE: 20181122
